FAERS Safety Report 8032915-X (Version None)
Quarter: 2011Q4

REPORT INFORMATION
  Report Type: 
  Country: None (occurrence: None)
  Receive Date: 20111229
  Receipt Date: 20111229
  Transmission Date: 20120403
  Serious: Yes (Life-Threatening)
  Sender: FDA-Public Use
  Company Number: 2011SP059359

PATIENT
  Age: 34 Year
  Sex: Female

DRUGS (2)
  1. SEROQUEL [Concomitant]
  2. SAPHRIS [Suspect]
     Indication: PRODUCT USED FOR UNKNOWN INDICATION
     Dosage: 5 MG; HS; SL 10 MG; HS; SL
     Route: 060

REACTIONS (2)
  - SUICIDAL IDEATION [None]
  - CONDITION AGGRAVATED [None]
